FAERS Safety Report 5548696-5 (Version None)
Quarter: 2007Q4

REPORT INFORMATION
  Report Type: 
  Country: None (occurrence: None)
  Receive Date: 20071206
  Receipt Date: 20071122
  Transmission Date: 20080405
  Serious: Yes (Hospitalization)
  Sender: FDA-Public Use
  Company Number: 164492ISR

PATIENT
  Age: 65 Year
  Sex: Female

DRUGS (2)
  1. METHOTREXATE [Suspect]
     Indication: RHEUMATOID ARTHRITIS
     Dates: start: 20070308, end: 20070801
  2. ETANERCEPT [Suspect]
     Indication: RHEUMATOID ARTHRITIS
     Dosage: 50 MG, 1 IN 1 WK); SUBCUTANEOUS
     Route: 058
     Dates: start: 20070501, end: 20070801

REACTIONS (3)
  - DIABETES MELLITUS [None]
  - HEPATITIS VIRAL [None]
  - MONOCLONAL IMMUNOGLOBULIN PRESENT [None]
